FAERS Safety Report 10202411 (Version 3)
Quarter: 2014Q2

REPORT INFORMATION
  Report Type: Spontaneous
  Country: JP (occurrence: JP)
  Receive Date: 20140528
  Receipt Date: 20140624
  Transmission Date: 20141212
  Serious: Yes (Hospitalization)
  Sender: FDA-Public Use
  Company Number: JP-B.I. PHARMACEUTICALS,INC./RIDGEFIELD-2014-BI-23017NB

PATIENT
  Age: 86 Year
  Sex: Male

DRUGS (5)
  1. PRAZAXA [Suspect]
     Indication: PROPHYLAXIS
     Dosage: 150 MG
     Route: 048
     Dates: end: 20140523
  2. NEXIUM [Concomitant]
     Dosage: 20 MG
     Route: 048
  3. FEBURIC [Concomitant]
     Dosage: 20 MG
     Route: 048
  4. MEVALOTIN [Concomitant]
     Dosage: 10 MG
     Route: 048
  5. NU-LOTAN [Concomitant]
     Dosage: 50 MG
     Route: 048

REACTIONS (1)
  - Aortic rupture [Not Recovered/Not Resolved]
